FAERS Safety Report 6497494-7 (Version None)
Quarter: 2009Q4

REPORT INFORMATION
  Report Type: 
  Country: None (occurrence: None)
  Receive Date: 20091215
  Receipt Date: 20091202
  Transmission Date: 20100525
  Serious: Yes (Hospitalization, Other)
  Sender: FDA-Public Use
  Company Number: US-ELI_LILLY_AND_COMPANY-US200912000902

PATIENT
  Sex: Female

DRUGS (12)
  1. FORTEO [Suspect]
     Dosage: 20 UG, DAILY (1/D)
     Dates: start: 20080301
  2. SYNTHROID [Concomitant]
     Dosage: 50 UG, DAILY (1/D)
  3. ATENOLOL [Concomitant]
  4. ASCORBIC ACID [Concomitant]
  5. VITAMIN B6 [Concomitant]
  6. VITAMIN B-12 [Concomitant]
  7. MULTI-VITAMIN [Concomitant]
  8. CALCIUM W/VITAMIN D NOS [Concomitant]
  9. FISH OIL [Concomitant]
  10. ZOCOR [Concomitant]
     Dosage: 40 MG, UNK
  11. KLONOPIN [Concomitant]
     Dosage: 1 MG, UNK
  12. BABY ASPIRIN [Concomitant]
     Dosage: UNK, QOD

REACTIONS (2)
  - ABDOMINAL PAIN UPPER [None]
  - INTESTINAL PERFORATION [None]
